FAERS Safety Report 9328834 (Version 1)
Quarter: 2013Q2

REPORT INFORMATION
  Report Type: Spontaneous
  Country: US (occurrence: US)
  Receive Date: 20130604
  Receipt Date: 20130604
  Transmission Date: 20140414
  Serious: No
  Sender: FDA-Public Use
  Company Number: US-ASTRAZENECA-2013SE34386

PATIENT
  Age: 60 Year
  Sex: Male
  Weight: 59 kg

DRUGS (15)
  1. OMEPRAZOLE [Suspect]
     Indication: GASTROOESOPHAGEAL REFLUX DISEASE
     Route: 048
     Dates: start: 201303, end: 201303
  2. PRILOSEC OTC [Suspect]
     Indication: OBSESSIVE-COMPULSIVE DISORDER
     Route: 048
     Dates: end: 201303
  3. PRILOSEC OTC [Suspect]
     Indication: GASTROOESOPHAGEAL REFLUX DISEASE
     Route: 048
     Dates: end: 201303
  4. PRILOSEC OTC [Suspect]
     Indication: OBSESSIVE-COMPULSIVE DISORDER
     Route: 048
     Dates: start: 201303
  5. PRILOSEC OTC [Suspect]
     Indication: GASTROOESOPHAGEAL REFLUX DISEASE
     Route: 048
     Dates: start: 201303
  6. SEROQUEL IR [Suspect]
     Indication: HYPERTENSION
     Route: 048
  7. SEROQUEL IR [Suspect]
     Indication: OBSESSIVE-COMPULSIVE DISORDER
     Route: 048
  8. SEROQUEL IR [Suspect]
     Indication: TINNITUS
     Route: 048
  9. SEROQUEL IR [Suspect]
     Indication: SLEEP DISORDER
     Route: 048
  10. METOPROLOL SUCCINATE [Suspect]
     Indication: HYPERTENSION
     Route: 048
     Dates: start: 201212, end: 201212
  11. METOPROLOL SUCCINATE [Suspect]
     Indication: HYPERTENSION
     Route: 048
     Dates: start: 201303, end: 201303
  12. METOPROLOL SUCCINATE [Suspect]
     Indication: HYPERTENSION
     Route: 048
     Dates: start: 20130514
  13. ZANAX [Concomitant]
  14. CLONIDIINE [Concomitant]
  15. VIAGARA [Concomitant]

REACTIONS (6)
  - Tinnitus [Unknown]
  - Hypertension [Unknown]
  - Obsessive-compulsive disorder [Unknown]
  - Sleep disorder [Unknown]
  - Intentional drug misuse [Unknown]
  - Off label use [Unknown]
